FAERS Safety Report 24358835 (Version 1)
Quarter: 2024Q3

REPORT INFORMATION
  Report Type: Report from Study
  Country: US (occurrence: US)
  Receive Date: 20240924
  Receipt Date: 20240924
  Transmission Date: 20241017
  Serious: No
  Sender: PAREXEL
  Company Number: US-Stemline Therapeutics, Inc.-2024ST003699

PATIENT

DRUGS (2)
  1. ORSERDU [Suspect]
     Active Substance: ELACESTRANT
     Indication: Breast cancer female
     Dosage: 345 MG, DAILY
     Route: 048
     Dates: start: 20240531
  2. TRUQAP [Concomitant]
     Active Substance: CAPIVASERTIB
     Indication: Breast cancer female
     Dosage: 400MG EVERY 12 HOURS - 4 DAYS ON, 3 DAYS OFF
     Dates: start: 20240508

REACTIONS (7)
  - Dry skin [Unknown]
  - Pelvic neoplasm [Unknown]
  - Pruritus [Unknown]
  - Hair growth abnormal [Unknown]
  - Dehydration [Unknown]
  - Diarrhoea [Unknown]
  - Metastases to spine [Unknown]
